FAERS Safety Report 13208800 (Version 1)
Quarter: 2017Q1

REPORT INFORMATION
  Report Type: Spontaneous
  Country: US (occurrence: US)
  Receive Date: 20170209
  Receipt Date: 20170209
  Transmission Date: 20170428
  Serious: No
  Sender: FDA-Public Use
  Company Number: US-ROCHE-1733551

PATIENT
  Age: 48 Year
  Sex: Female
  Weight: 134 kg

DRUGS (11)
  1. SYMBICORT [Concomitant]
     Active Substance: BUDESONIDE\FORMOTEROL FUMARATE DIHYDRATE
     Indication: ASTHMA
     Route: 055
  2. PULMICORT TURBUHALER [Concomitant]
     Active Substance: BUDESONIDE
     Indication: ASTHMA
     Route: 055
  3. MONTELUKAST [Concomitant]
     Active Substance: MONTELUKAST SODIUM
     Indication: ASTHMA
     Route: 048
  4. FEXOFENADINE [Concomitant]
     Active Substance: FEXOFENADINE\FEXOFENADINE HYDROCHLORIDE
     Indication: RHINITIS ALLERGIC
     Route: 048
  5. PANTOPRAZOLE [Concomitant]
     Active Substance: PANTOPRAZOLE SODIUM
     Indication: GASTROOESOPHAGEAL REFLUX DISEASE
     Route: 048
  6. DILTIAZEM. [Concomitant]
     Active Substance: DILTIAZEM
     Indication: HYPERTENSION
     Route: 048
  7. NASONEX [Concomitant]
     Active Substance: MOMETASONE FUROATE
     Indication: RHINITIS ALLERGIC
     Route: 055
  8. ATROVENT [Concomitant]
     Active Substance: IPRATROPIUM BROMIDE
     Indication: RHINITIS
     Route: 055
  9. XOLAIR [Suspect]
     Active Substance: OMALIZUMAB
     Indication: ASTHMA
     Route: 058
     Dates: start: 20150805
  10. FAMOTIDINE. [Concomitant]
     Active Substance: FAMOTIDINE
     Indication: URTICARIA
     Route: 048
  11. METFORMIN [Concomitant]
     Active Substance: METFORMIN HYDROCHLORIDE
     Indication: DIABETES MELLITUS
     Route: 048

REACTIONS (4)
  - Ear infection [Not Recovered/Not Resolved]
  - Excessive cerumen production [Unknown]
  - Tinnitus [Not Recovered/Not Resolved]
  - Ear pain [Not Recovered/Not Resolved]

NARRATIVE: CASE EVENT DATE: 20160102
